FAERS Safety Report 5980951-7 (Version None)
Quarter: 2008Q4

REPORT INFORMATION
  Report Type: 
  Country: None (occurrence: None)
  Receive Date: 20081205
  Receipt Date: 20080813
  Transmission Date: 20090506
  Serious: No
  Sender: FDA-Public Use
  Company Number: A0742340A

PATIENT
  Age: 45 Year
  Sex: Female

DRUGS (3)
  1. COMMIT [Suspect]
  2. NICODERM CQ [Suspect]
  3. NICORETTE [Suspect]

REACTIONS (5)
  - ABDOMINAL DISCOMFORT [None]
  - INTENTIONAL DRUG MISUSE [None]
  - NICOTINE DEPENDENCE [None]
  - RASH [None]
  - THROAT IRRITATION [None]
